FAERS Safety Report 9043974 (Version 1)
Quarter: 2013Q1

REPORT INFORMATION
  Report Type: Report from Study
  Country: BR (occurrence: US)
  Receive Date: 20130130
  Receipt Date: 20130130
  Transmission Date: 20140127
  Serious: No
  Sender: FDA-Public Use
  Company Number: US-ABBOTT-12P-163-0946642-00

PATIENT
  Sex: Male
  Weight: 72.64 kg

DRUGS (2)
  1. HUMIRA 40 MG/0.8 ML PEN [Suspect]
     Indication: CROHN^S DISEASE
     Dates: start: 2005, end: 201204
  2. HUMIRA 40 MG/0.8 ML PEN [Suspect]
     Dates: start: 20120601

REACTIONS (2)
  - Pain [Recovering/Resolving]
  - Muscle strain [Recovering/Resolving]
